FAERS Safety Report 5894793-4 (Version None)
Quarter: 2008Q3

REPORT INFORMATION
  Report Type: 
  Country: None (occurrence: None)
  Receive Date: 20080924
  Receipt Date: 20080620
  Transmission Date: 20090109
  Serious: No
  Sender: FDA-Public Use
  Company Number: US-ASTRAZENECA-2008UW12500

PATIENT
  Age: 25 Year
  Sex: Male

DRUGS (4)
  1. SEROQUEL [Suspect]
     Route: 048
  2. LEXAPRO [Suspect]
  3. METHADONE HCL [Suspect]
  4. STRATTERA [Concomitant]

REACTIONS (3)
  - BLOOD TESTOSTERONE ABNORMAL [None]
  - HEPATITIS C [None]
  - LIBIDO DECREASED [None]
